FAERS Safety Report 13215239 (Version 3)
Quarter: 2019Q4

REPORT INFORMATION
  Report Type: Spontaneous
  Country: US (occurrence: US)
  Receive Date: 20170210
  Receipt Date: 20191220
  Transmission Date: 20200122
  Serious: Yes (Death, Hospitalization, Other)
  Sender: FDA-Public Use
  Company Number: US-GILEAD-2017-0257218

PATIENT
  Age: 53 Year
  Sex: Female
  Weight: 123.49 kg

DRUGS (20)
  1. VIEKIRA PAK [Suspect]
     Active Substance: DASABUVIR\OMBITASVIR\PARITAPREVIR\RITONAVIR
     Indication: CHRONIC HEPATITIS C
     Dosage: UNK
     Route: 048
  2. AMMONIUM LACTATE. [Concomitant]
     Active Substance: AMMONIUM LACTATE
  3. BENZYLPENICILLIN [Concomitant]
     Active Substance: PENICILLIN G
  4. DICLOFENAC [Concomitant]
     Active Substance: DICLOFENAC
  5. HYDROCHLOROTHIAZIDE. [Concomitant]
     Active Substance: HYDROCHLOROTHIAZIDE
  6. RIBAVIRIN. [Suspect]
     Active Substance: RIBAVIRIN
     Indication: CHRONIC HEPATITIS C
     Dosage: 200 MG, UNK
     Route: 048
  7. CLINDAMYCIN. [Concomitant]
     Active Substance: CLINDAMYCIN
  8. LEVOTHYROXINE SODIUM. [Concomitant]
     Active Substance: LEVOTHYROXINE SODIUM
  9. OMEPRAZOLE. [Concomitant]
     Active Substance: OMEPRAZOLE
  10. CITALOPRAM [Concomitant]
     Active Substance: CITALOPRAM HYDROBROMIDE
  11. ARIPIPRAZOLE. [Concomitant]
     Active Substance: ARIPIPRAZOLE
  12. FUROSEMIDE. [Concomitant]
     Active Substance: FUROSEMIDE
  13. CEFALEXIN [Concomitant]
     Active Substance: CEPHALEXIN
  14. METHADONE [Concomitant]
     Active Substance: METHADONE HYDROCHLORIDE
  15. POTASSIUM CHLORIDE. [Concomitant]
     Active Substance: POTASSIUM CHLORIDE
  16. HARVONI [Suspect]
     Active Substance: LEDIPASVIR\SOFOSBUVIR
     Indication: CHRONIC HEPATITIS C
     Route: 065
  17. CLEMIZOLE PENICILLIN [Concomitant]
     Active Substance: CLEMIZOLE PENICILLIN
  18. FORMOTEROL FUMARATE [Concomitant]
     Active Substance: FORMOTEROL FUMARATE
  19. ABILIFY [Concomitant]
     Active Substance: ARIPIPRAZOLE
  20. ESCITALOPRAM OXALATE. [Concomitant]
     Active Substance: ESCITALOPRAM OXALATE

REACTIONS (21)
  - Acute respiratory failure [Unknown]
  - Chronic hepatitis C [Unknown]
  - Septic shock [Unknown]
  - Adverse drug reaction [Unknown]
  - Hypothyroidism [Unknown]
  - Disseminated intravascular coagulation [Unknown]
  - Sepsis [Unknown]
  - Blood hyposmosis [Unknown]
  - Electrolyte imbalance [Unknown]
  - Magnesium metabolism disorder [Unknown]
  - Hepatic cirrhosis [Unknown]
  - Obesity [Unknown]
  - Body mass index increased [Unknown]
  - Anaemia [Unknown]
  - Cardio-respiratory arrest [Fatal]
  - Cardiomyopathy [Unknown]
  - Essential hypertension [Unknown]
  - Thrombocytopenia [Unknown]
  - Atrial fibrillation [Unknown]
  - Hyponatraemia [Unknown]
  - Lymphoedema [Unknown]

NARRATIVE: CASE EVENT DATE: 20150813
